FAERS Safety Report 9466677 (Version 1)
Quarter: 2013Q3

REPORT INFORMATION
  Report Type: Spontaneous
  Country: US (occurrence: None)
  Receive Date: 20130816
  Receipt Date: 20130816
  Transmission Date: 20140515
  Serious: Yes (Other)
  Sender: FDA-Public Use
  Company Number: None

PATIENT
  Age: 6 Year
  Sex: Male
  Weight: 23.59 kg

DRUGS (7)
  1. INTUNIV [Suspect]
     Indication: ATTENTION DEFICIT/HYPERACTIVITY DISORDER
     Dosage: 1 TABLET, QD, ORAL
     Route: 048
     Dates: start: 20130814, end: 20130815
  2. VITAMINS [Concomitant]
  3. CETIRIZINE [Concomitant]
  4. DHAS [Concomitant]
  5. EFAS [Concomitant]
  6. PROBIOTICS [Concomitant]
  7. INHALERS [Concomitant]

REACTIONS (7)
  - Erythema [None]
  - Disturbance in attention [None]
  - Temperature intolerance [None]
  - Feeling hot [None]
  - Disturbance in attention [None]
  - Polydipsia [None]
  - Educational problem [None]
